FAERS Safety Report 4550175-9 (Version None)
Quarter: 2005Q1

REPORT INFORMATION
  Report Type: 
  Country: None (occurrence: None)
  Receive Date: 20050107
  Receipt Date: 20041223
  Transmission Date: 20050727
  Serious: No
  Sender: FDA-Public Use
  Company Number: MK200412-0369-1

PATIENT
  Sex: Female

DRUGS (1)
  1. OPTIRAY 350 [Suspect]
     Indication: COMPUTERISED TOMOGRAM
     Dosage: 150 ML, ONCE, IV
     Route: 042
     Dates: start: 20041221, end: 20041221

REACTIONS (6)
  - BLISTER [None]
  - COMPARTMENT SYNDROME [None]
  - EXTRAVASATION [None]
  - MEDICATION ERROR [None]
  - OEDEMA PERIPHERAL [None]
  - PHARMACEUTICAL PRODUCT COMPLAINT [None]
